FAERS Safety Report 9257839 (Version 2)
Quarter: 2013Q2

REPORT INFORMATION
  Report Type: Spontaneous
  Country: BR (occurrence: None)
  Receive Date: 20130423
  Receipt Date: 20130610
  Transmission Date: 20140414
  Serious: Yes (Death, Hospitalization)
  Sender: FDA-Public Use
  Company Number: 2013-001172

PATIENT
  Age: 66 Year
  Sex: Female
  Weight: 74 kg

DRUGS (2)
  1. ACTONEL (RISEDRONATE SODIUM) TABLET, 150MG [Suspect]
     Indication: OSTEOPOROSIS
     Route: 048
     Dates: end: 201209
  2. ALL OTHER THERAPEUTIC PRODUCTS [Suspect]
     Dates: end: 201209

REACTIONS (8)
  - Hepatic cirrhosis [None]
  - Liver disorder [None]
  - Osteoporosis [None]
  - Condition aggravated [None]
  - Multi-organ failure [None]
  - Renal failure [None]
  - Brain hypoxia [None]
  - Amnesia [None]
